FAERS Safety Report 4915679-5 (Version None)
Quarter: 2006Q1

REPORT INFORMATION
  Report Type: 
  Country: None (occurrence: None)
  Receive Date: 20060214
  Receipt Date: 20060208
  Transmission Date: 20060701
  Serious: Yes (Other)
  Sender: FDA-Public Use
  Company Number: S05-USA-05284-01

PATIENT
  Age: 68 Year
  Sex: Female

DRUGS (6)
  1. LEXAPRO [Suspect]
     Indication: DEPRESSION
     Dosage: 10 MG QD PO
     Route: 048
     Dates: start: 20051206
  2. LISINOPRIL [Concomitant]
  3. HYDROCHLOROTHIAZIDE [Concomitant]
  4. THYROID TAB [Concomitant]
  5. NEXIUM [Concomitant]
  6. CELEBREX [Concomitant]

REACTIONS (2)
  - BLOOD PRESSURE INCREASED [None]
  - CONSTIPATION [None]
